FAERS Safety Report 18269935 (Version 7)
Quarter: 2022Q1

REPORT INFORMATION
  Report Type: Spontaneous
  Country: US (occurrence: US)
  Receive Date: 20200915
  Receipt Date: 20220321
  Transmission Date: 20220423
  Serious: No
  Sender: FDA-Public Use
  Company Number: US-PFIZER INC-2020355094

PATIENT
  Age: 80 Year
  Sex: Female

DRUGS (3)
  1. IBRANCE [Suspect]
     Active Substance: PALBOCICLIB
     Indication: Breast cancer female
     Dosage: 75 MG, CYCLIC (ONCE A DAY, 3 WEEKS AND THEN OFF 1 WEEK)
     Route: 048
     Dates: start: 2020
  2. NITROSTAT [Concomitant]
     Active Substance: NITROGLYCERIN
     Dosage: UNK
  3. LOPRESSOR [Concomitant]
     Active Substance: METOPROLOL TARTRATE
     Dosage: UNK

REACTIONS (9)
  - Decreased appetite [Unknown]
  - Chest pain [Unknown]
  - Dyspnoea [Unknown]
  - Tongue disorder [Unknown]
  - Taste disorder [Unknown]
  - Weight decreased [Recovered/Resolved]
  - Feeling abnormal [Unknown]
  - Alopecia [Unknown]
  - Fatigue [Unknown]

NARRATIVE: CASE EVENT DATE: 20200101
